FAERS Safety Report 19306778 (Version 1)
Quarter: 2021Q2

REPORT INFORMATION
  Report Type: Spontaneous
  Country: US (occurrence: US)
  Receive Date: 20210526
  Receipt Date: 20210526
  Transmission Date: 20210717
  Serious: Yes (Other)
  Sender: FDA-Public Use
  Company Number: US-PFIZER INC-2021228125

PATIENT
  Age: 30 Year
  Sex: Male
  Weight: 81.65 kg

DRUGS (1)
  1. VIAGRA [Suspect]
     Active Substance: SILDENAFIL CITRATE
     Dosage: UNK, AS NEEDED (DOSE UNKNOWN TABLET BY MOUTH AS NEEDED)
     Route: 048

REACTIONS (1)
  - Erection increased [Unknown]
